FAERS Safety Report 10804549 (Version 1)
Quarter: 2015Q1

REPORT INFORMATION
  Report Type: Spontaneous
  Country: IT (occurrence: IT)
  Receive Date: 20150217
  Receipt Date: 20150217
  Transmission Date: 20150721
  Serious: Yes (Hospitalization)
  Sender: FDA-Public Use
  Company Number: IT-SA-2015SA017611

PATIENT
  Age: 82 Year
  Sex: Male

DRUGS (9)
  1. PANTOPRAZOLE [Concomitant]
     Active Substance: PANTOPRAZOLE SODIUM
     Dosage: PEPTAZOL 28 GASTRO RESISTANT TABLET 20 MG IN BLISTER
     Route: 048
  2. BISOPROLOL FUMARATE. [Concomitant]
     Active Substance: BISOPROLOL FUMARATE
     Route: 048
  3. ALLOPURINOL. [Concomitant]
     Active Substance: ALLOPURINOL
     Route: 048
  4. DOXAZOSIN [Concomitant]
     Active Substance: DOXAZOSIN\DOXAZOSIN MESYLATE
     Route: 048
  5. COUMADIN [Suspect]
     Active Substance: WARFARIN SODIUM
     Indication: ATRIAL FIBRILLATION
     Dosage: DIVISIBLE TABLET
     Route: 048
     Dates: start: 20140101, end: 20150128
  6. TAPAZOLE [Concomitant]
     Active Substance: METHIMAZOLE
     Dosage: 5 MG TABLETS^ BLISTER OF 100 TABLETS
     Route: 048
  7. PLAVIX [Suspect]
     Active Substance: CLOPIDOGREL BISULFATE
     Indication: THROMBOSIS PROPHYLAXIS
     Route: 048
     Dates: start: 20140101, end: 20150128
  8. LASIX [Concomitant]
     Active Substance: FUROSEMIDE
     Dosage: LASIX (FUROSEMIDE) 25 MG TABLET, 30 TABLETS?DOSAGE:2 DOSAGE UNIT
     Route: 048
  9. TORVAST [Concomitant]
     Active Substance: ATORVASTATIN
     Dosage: TORVAST 40 MG TABLET, 30 TABLETS
     Route: 048

REACTIONS (6)
  - Haemorrhage [Unknown]
  - Vomiting [Unknown]
  - Confusional state [Unknown]
  - Bradycardia [Unknown]
  - Subdural haematoma [Unknown]
  - Vertigo [Unknown]

NARRATIVE: CASE EVENT DATE: 20150128
